FAERS Safety Report 4427048-5 (Version None)
Quarter: 2004Q3

REPORT INFORMATION
  Report Type: 
  Country: None (occurrence: None)
  Receive Date: 20040811
  Receipt Date: 20040729
  Transmission Date: 20050211
  Serious: Yes (Death, Other)
  Sender: FDA-Public Use
  Company Number: 2003122645

PATIENT
  Age: 35 Year
  Sex: Male

DRUGS (4)
  1. GEODON [Suspect]
     Indication: AGITATION
     Dosage: INTRAMUSCULAR
     Route: 030
     Dates: start: 20030101, end: 20030101
  2. OPIOIDS [Concomitant]
  3. ALL OTHER NON-THERAPEUTIC PRODUCTS [Concomitant]
  4. VICODIN [Concomitant]

REACTIONS (1)
  - DEATH [None]
